FAERS Safety Report 7591768-4 (Version None)
Quarter: 2011Q3

REPORT INFORMATION
  Report Type: 
  Country: None (occurrence: None)
  Receive Date: 20110706
  Receipt Date: 20110624
  Transmission Date: 20111222
  Serious: Yes (Hospitalization, Other)
  Sender: FDA-Public Use
  Company Number: US-BAYER-2011-005047

PATIENT
  Age: 33 Year
  Sex: Female
  Weight: 77.098 kg

DRUGS (6)
  1. ACETAMINOPHEN [Concomitant]
  2. DROSPIRENONE AND ETHINYL ESTRADIOL [Suspect]
     Indication: PRODUCT USED FOR UNKNOWN INDICATION
     Dosage: SAMPLES RECEIVED
  3. IBUPROFEN [Concomitant]
  4. VITAMINS NOS [Concomitant]
  5. YAZ [Suspect]
     Dosage: UNK
     Dates: start: 20040101, end: 20090901
  6. NAPROXEN (ALEVE) [Concomitant]

REACTIONS (4)
  - PAIN [None]
  - EMOTIONAL DISTRESS [None]
  - CHOLECYSTITIS CHRONIC [None]
  - GALLBLADDER DISORDER [None]
